FAERS Safety Report 13081666 (Version 2)
Quarter: 2017Q1

REPORT INFORMATION
  Report Type: Spontaneous
  Country: US (occurrence: US)
  Receive Date: 20170103
  Receipt Date: 20170105
  Transmission Date: 20170428
  Serious: No
  Sender: FDA-Public Use
  Company Number: US-PFIZER INC-2016593012

PATIENT
  Age: 17 Year
  Sex: Female

DRUGS (24)
  1. MAGNESIUM SULFATE. [Suspect]
     Active Substance: MAGNESIUM SULFATE
     Indication: PAIN
  2. MAGNESIUM CHELATE [Suspect]
     Active Substance: MAGNESIUM
     Indication: HYPOAESTHESIA
     Dosage: UNK UNK, 3X/DAY
  3. MAGNESIUM SULFATE. [Suspect]
     Active Substance: MAGNESIUM SULFATE
     Indication: ASTHENIA
  4. MAGNESIUM SULFATE. [Suspect]
     Active Substance: MAGNESIUM SULFATE
     Indication: VISION BLURRED
  5. MAGNESIUM SULFATE. [Suspect]
     Active Substance: MAGNESIUM SULFATE
     Indication: MALAISE
  6. MAGNESIUM CHELATE [Suspect]
     Active Substance: MAGNESIUM
     Indication: VISION BLURRED
  7. MAGNESIUM CHELATE [Suspect]
     Active Substance: MAGNESIUM
     Indication: CONFUSIONAL STATE
  8. MAGNESIUM SULFATE. [Suspect]
     Active Substance: MAGNESIUM SULFATE
     Indication: FATIGUE
  9. MAGNESIUM CHELATE [Suspect]
     Active Substance: MAGNESIUM
     Indication: DYSSTASIA
  10. MAGNESIUM CHELATE [Suspect]
     Active Substance: MAGNESIUM
     Indication: PAIN
  11. MAGNESIUM CHELATE [Suspect]
     Active Substance: MAGNESIUM
     Indication: PARAESTHESIA
  12. MAGNESIUM CHELATE [Suspect]
     Active Substance: MAGNESIUM
     Indication: ASTHENIA
  13. MAGNESIUM SULFATE. [Suspect]
     Active Substance: MAGNESIUM SULFATE
     Indication: DYSSTASIA
  14. MAGNESIUM SULFATE. [Suspect]
     Active Substance: MAGNESIUM SULFATE
     Indication: PARAESTHESIA
  15. MAGNESIUM CHELATE [Suspect]
     Active Substance: MAGNESIUM
     Indication: NAUSEA
  16. MAGNESIUM CHELATE [Suspect]
     Active Substance: MAGNESIUM
     Indication: MUSCULAR WEAKNESS
  17. MAGNESIUM SULFATE. [Suspect]
     Active Substance: MAGNESIUM SULFATE
     Indication: HYPOAESTHESIA
     Dosage: UNK
  18. MAGNESIUM CHELATE [Suspect]
     Active Substance: MAGNESIUM
     Indication: MALAISE
  19. MAGNESIUM SULFATE. [Suspect]
     Active Substance: MAGNESIUM SULFATE
     Indication: CONFUSIONAL STATE
  20. MAGNESIUM SULFATE. [Suspect]
     Active Substance: MAGNESIUM SULFATE
     Indication: NAUSEA
  21. MAGNESIUM SULFATE. [Suspect]
     Active Substance: MAGNESIUM SULFATE
     Indication: MIGRAINE
  22. MAGNESIUM SULFATE. [Suspect]
     Active Substance: MAGNESIUM SULFATE
     Indication: MUSCULAR WEAKNESS
  23. MAGNESIUM CHELATE [Suspect]
     Active Substance: MAGNESIUM
     Indication: MIGRAINE
  24. MAGNESIUM CHELATE [Suspect]
     Active Substance: MAGNESIUM
     Indication: FATIGUE

REACTIONS (2)
  - Headache [Not Recovered/Not Resolved]
  - Product use issue [Unknown]
